FAERS Safety Report 19681926 (Version 1)
Quarter: 2021Q3

REPORT INFORMATION
  Report Type: Spontaneous
  Country: AT (occurrence: AT)
  Receive Date: 20210810
  Receipt Date: 20210810
  Transmission Date: 20211014
  Serious: Yes (Other)
  Sender: FDA-Public Use
  Company Number: NVSC2021AT175896

PATIENT
  Age: 40 Year
  Sex: Female

DRUGS (1)
  1. PENICILLIN G SODIUM SANDOZ [Suspect]
     Active Substance: PENICILLIN G SODIUM
     Indication: PRODUCT USED FOR UNKNOWN INDICATION
     Dosage: GEM?? FACHINFORMATION
     Route: 042

REACTIONS (3)
  - Urticaria [Unknown]
  - Swelling [Unknown]
  - Type I hypersensitivity [Unknown]
